FAERS Safety Report 13653399 (Version 1)
Quarter: 2017Q2

REPORT INFORMATION
  Report Type: Spontaneous
  Country: US (occurrence: US)
  Receive Date: 20170614
  Receipt Date: 20170614
  Transmission Date: 20170830
  Serious: No
  Sender: FDA-Public Use
  Company Number: US-ROCHE-1312795

PATIENT
  Sex: Male

DRUGS (2)
  1. XELODA [Suspect]
     Active Substance: CAPECITABINE
     Dosage: 2 IN THE AM 1 IN THE PM, 7 DAYS ON 7 DAYS OFF
     Route: 048
     Dates: start: 20130117, end: 201312
  2. XELODA [Suspect]
     Active Substance: CAPECITABINE
     Indication: COLON CANCER
     Dosage: 7 DAYS ON, 7 DAYS OFF
     Route: 048
     Dates: start: 20110824

REACTIONS (2)
  - Dry skin [Unknown]
  - Peripheral swelling [Unknown]
